FAERS Safety Report 5919223-5 (Version None)
Quarter: 2008Q4

REPORT INFORMATION
  Report Type: 
  Country: None (occurrence: None)
  Receive Date: 20081010
  Receipt Date: 20080925
  Transmission Date: 20090506
  Serious: Yes (Other)
  Sender: FDA-Public Use
  Company Number: 8036861

PATIENT
  Age: 56 Year
  Sex: Male

DRUGS (3)
  1. KEPPRA [Suspect]
     Indication: EPILEPSY
     Dosage: 250 MG /D PO
     Route: 048
     Dates: start: 20060720, end: 20080725
  2. GARDENALE   /00023203/ [Suspect]
     Indication: EPILEPSY
     Dosage: 100 MG /D PO
     Route: 048
     Dates: start: 20080618, end: 20080720
  3. CORTICOSTEROIDS [Concomitant]

REACTIONS (4)
  - ANAEMIA [None]
  - LIVER DISORDER [None]
  - TOXIC EPIDERMAL NECROLYSIS [None]
  - WHITE BLOOD CELL COUNT DECREASED [None]
